FAERS Safety Report 4746422-0 (Version None)
Quarter: 2005Q3

REPORT INFORMATION
  Report Type: 
  Country: None (occurrence: None)
  Receive Date: 20050816
  Receipt Date: 20050816
  Transmission Date: 20060218
  Serious: Yes (Hospitalization)
  Sender: FDA-Public Use
  Company Number: None

PATIENT
  Sex: Female
  Weight: 85.6 kg

DRUGS (2)
  1. GEMZAR [Suspect]
     Indication: NEOPLASM MALIGNANT
     Dosage: 1000 MG , IV Q 3 WKS DAY 1 AND DAY 8
     Route: 042
     Dates: start: 20050630
  2. CARBOPLATIN [Suspect]
     Dosage: AUC5 , IV, Q 3 WKS
     Route: 042

REACTIONS (2)
  - ANAEMIA [None]
  - THROMBOCYTOPENIA [None]
